FAERS Safety Report 6253181-1 (Version None)
Quarter: 2009Q3

REPORT INFORMATION
  Report Type: 
  Country: None (occurrence: None)
  Receive Date: 20090701
  Receipt Date: 20090623
  Transmission Date: 20100115
  Serious: Yes (Disabling)
  Sender: FDA-Public Use
  Company Number: DK-AVENTIS-200916379GDDC

PATIENT
  Age: 61 Year
  Sex: Male

DRUGS (1)
  1. METRONIDAZOLE [Suspect]
     Dates: start: 20061117, end: 20070112

REACTIONS (2)
  - DYSGEUSIA [None]
  - NEUROPATHY PERIPHERAL [None]
